FAERS Safety Report 21189942 (Version 3)
Quarter: 2022Q4

REPORT INFORMATION
  Report Type: Spontaneous
  Country: JP (occurrence: JP)
  Receive Date: 20220809
  Receipt Date: 20221021
  Transmission Date: 20230112
  Serious: No
  Sender: FDA-Public Use
  Company Number: JP-GSK-JP2022JPN116036

PATIENT

DRUGS (6)
  1. SOTROVIMAB [Suspect]
     Active Substance: SOTROVIMAB
     Indication: COVID-19
     Dosage: UNK
     Dates: start: 20220802
  2. PROPYLTHIOURACIL [Suspect]
     Active Substance: PROPYLTHIOURACIL
     Dosage: 50 MG/DAY
     Route: 048
     Dates: start: 20210903, end: 20220304
  3. FIASP [Suspect]
     Active Substance: INSULIN ASPART
     Dosage: UNK, ADJUSTED WITH SLIDING SCALE
     Route: 058
  4. TRESIBA [Suspect]
     Active Substance: INSULIN DEGLUDEC
     Dosage: 2 U/DOSE
     Route: 058
  5. ASPIRIN [Suspect]
     Active Substance: ASPIRIN
     Dosage: 100 MG/DAY
     Route: 048
  6. LORATADINE [Suspect]
     Active Substance: LORATADINE
     Dosage: 10 MG/DAY
     Route: 048

REACTIONS (2)
  - Exposure during pregnancy [Unknown]
  - Live birth [Unknown]
